FAERS Safety Report 8552760-6 (Version None)
Quarter: 2012Q3

REPORT INFORMATION
  Report Type: 
  Country: None (occurrence: None)
  Receive Date: 20120719
  Receipt Date: 20120703
  Transmission Date: 20120928
  Serious: Yes (Other)
  Sender: FDA-Public Use
  Company Number: 2012SA048562

PATIENT
  Age: 35 Year
  Sex: Female

DRUGS (1)
  1. ICY HOT NO MESS [Suspect]
     Dosage: UNK, TOPICAL
     Route: 061
     Dates: end: 20120701

REACTIONS (3)
  - BURNING SENSATION [None]
  - ERYTHEMA [None]
  - PAIN [None]
